FAERS Safety Report 9735668 (Version 1)
Quarter: 2013Q4

REPORT INFORMATION
  Report Type: Spontaneous
  Country: US (occurrence: None)
  Receive Date: 20131204
  Receipt Date: 20131204
  Transmission Date: 20140711
  Serious: Yes (Hospitalization)
  Sender: FDA-Public Use
  Company Number: AUR-APL-2013-10014

PATIENT
  Age: 78 Year
  Sex: Female

DRUGS (3)
  1. CEFAZOLIN [Suspect]
     Indication: PROPHYLAXIS
  2. METHOTREXATE (METHOTREXATE) [Concomitant]
  3. PREDNISONE (PREDNISONE) [Concomitant]

REACTIONS (9)
  - Clostridium difficile colitis [None]
  - Septic shock [None]
  - Metabolic acidosis [None]
  - Renal failure acute [None]
  - Flatulence [None]
  - General physical health deterioration [None]
  - Bandaemia [None]
  - Intestinal ischaemia [None]
  - Gastrointestinal necrosis [None]
